FAERS Safety Report 18373569 (Version 1)
Quarter: 2020Q4

REPORT INFORMATION
  Report Type: Spontaneous
  Country: US (occurrence: US)
  Receive Date: 20201012
  Receipt Date: 20201012
  Transmission Date: 20210114
  Serious: Yes (Other)
  Sender: FDA-Public Use
  Company Number: US-SA-2020SA275128

PATIENT

DRUGS (2)
  1. OPTIPEN [Suspect]
     Active Substance: DEVICE
     Dosage: UNKNOWN
     Route: 065
  2. LANTUS [Suspect]
     Active Substance: INSULIN GLARGINE
     Dosage: UNKNOWN
     Route: 065

REACTIONS (2)
  - Aphasia [Unknown]
  - Cerebrovascular accident [Unknown]
